FAERS Safety Report 10095979 (Version 1)
Quarter: 2014Q2

REPORT INFORMATION
  Report Type: Report from Study
  Country: DE (occurrence: DE)
  Receive Date: 20140422
  Receipt Date: 20140422
  Transmission Date: 20141212
  Serious: Yes (Death)
  Sender: FDA-Public Use
  Company Number: GXKR2014DE001662

PATIENT
  Age: 79 Year
  Sex: Male
  Weight: 69 kg

DRUGS (3)
  1. DOCETAXEL NC [Suspect]
     Indication: PROSTATE CANCER
     Dosage: 75 MG/M2, TIW
     Route: 041
     Dates: start: 20130114, end: 20130304
  2. DEXAMETHASON//DEXAMETHASONE [Concomitant]
     Dosage: 8 MG, TIW
     Route: 041
     Dates: start: 20100422, end: 20130304
  3. NAVOBAN [Concomitant]
     Dosage: 2 MG, TIW
     Route: 041
     Dates: start: 20100422, end: 20130304

REACTIONS (1)
  - Death [Fatal]
